FAERS Safety Report 9787738 (Version 1)
Quarter: 2013Q4

REPORT INFORMATION
  Report Type: Spontaneous
  Country: US (occurrence: US)
  Receive Date: 20131230
  Receipt Date: 20131230
  Transmission Date: 20140711
  Serious: Yes (Other)
  Sender: FDA-Public Use
  Company Number: US-JNJFOC-20131213991

PATIENT
  Age: 80 Year
  Sex: Male
  Weight: 68.04 kg

DRUGS (5)
  1. XARELTO [Suspect]
     Indication: CEREBROVASCULAR ACCIDENT PROPHYLAXIS
     Route: 048
     Dates: start: 20131128, end: 20131130
  2. XARELTO [Suspect]
     Indication: CEREBROVASCULAR ACCIDENT PROPHYLAXIS
     Route: 048
     Dates: start: 20131203
  3. XARELTO [Suspect]
     Indication: ATRIAL FIBRILLATION
     Route: 048
     Dates: start: 20131203
  4. XARELTO [Suspect]
     Indication: ATRIAL FIBRILLATION
     Route: 048
     Dates: start: 20131128, end: 20131130
  5. ZOCOR [Concomitant]
     Indication: BLOOD CHOLESTEROL
     Dosage: DURATION 10-15 YEARS
     Route: 048

REACTIONS (3)
  - Epistaxis [Recovered/Resolved]
  - Ocular hyperaemia [Not Recovered/Not Resolved]
  - Cardiac ablation [Unknown]
